FAERS Safety Report 9286242 (Version 2)
Quarter: 2013Q2

REPORT INFORMATION
  Report Type: Spontaneous
  Country: JP (occurrence: JP)
  Receive Date: 20130513
  Receipt Date: 20130530
  Transmission Date: 20140414
  Serious: Yes (Hospitalization)
  Sender: FDA-Public Use
  Company Number: JP-GLAXOSMITHKLINE-B0888687A

PATIENT
  Age: 86 Year
  Sex: Female

DRUGS (2)
  1. PAXIL [Suspect]
     Indication: DEPRESSION
     Dosage: 50MG PER DAY
     Route: 048
     Dates: start: 20130417, end: 20130420
  2. GRAMALIL [Concomitant]
     Route: 048
     Dates: start: 20130417

REACTIONS (3)
  - Urinary retention [Unknown]
  - Pubis fracture [Unknown]
  - Hernia [Unknown]
